FAERS Safety Report 6681719-9 (Version None)
Quarter: 2010Q2

REPORT INFORMATION
  Report Type: 
  Country: None (occurrence: None)
  Receive Date: 20100414
  Receipt Date: 20100402
  Transmission Date: 20101027
  Serious: Yes (Other)
  Sender: FDA-Public Use
  Company Number: US-PFIZER INC-2010042492

PATIENT
  Sex: Female
  Weight: 86 kg

DRUGS (5)
  1. CHANTIX [Suspect]
     Indication: SMOKING CESSATION THERAPY
     Dosage: 0.5 MG, 1X/DAY
     Route: 048
     Dates: start: 20100206, end: 20100201
  2. CHANTIX [Suspect]
     Dosage: 0.5 MG, 2X/DAY
     Route: 048
     Dates: start: 20100201, end: 20100201
  3. ESTRADIOL [Concomitant]
     Indication: HORMONE REPLACEMENT THERAPY
     Dosage: 1 MG, 1X/DAY
     Route: 048
  4. VITAMIN B-12 [Concomitant]
     Dosage: FREQUENCY: WEEKLY
  5. VITAMIN D [Concomitant]
     Dosage: 50000 IU, 2X/WEEK

REACTIONS (4)
  - ANTINUCLEAR ANTIBODY INCREASED [None]
  - HOSTILITY [None]
  - SKIN EXFOLIATION [None]
  - SYSTEMIC LUPUS ERYTHEMATOSUS [None]
